FAERS Safety Report 12287433 (Version 3)
Quarter: 2016Q3

REPORT INFORMATION
  Report Type: Spontaneous
  Country: US (occurrence: US)
  Receive Date: 20160420
  Receipt Date: 20160916
  Transmission Date: 20161109
  Serious: No
  Sender: FDA-Public Use
  Company Number: US-ALKERMES INC.-ALK-2016-000843

PATIENT
  Age: 42 Year
  Sex: Female
  Weight: 97.51 kg

DRUGS (7)
  1. ARISTADA [Suspect]
     Active Substance: ARIPIPRAZOLE LAUROXIL
     Indication: BIPOLAR I DISORDER
     Dosage: UNK MG, UNK
     Route: 030
     Dates: start: 20160303
  2. ABILIFY [Concomitant]
     Active Substance: ARIPIPRAZOLE
     Dosage: 15 MG, UNK
     Dates: start: 201603
  3. ABILIFY [Concomitant]
     Active Substance: ARIPIPRAZOLE
     Indication: PRODUCT USED FOR UNKNOWN INDICATION
     Dosage: 10 MG, UNK
     Dates: start: 20160225
  4. OXAZEPAM. [Concomitant]
     Active Substance: OXAZEPAM
     Indication: PRODUCT USED FOR UNKNOWN INDICATION
     Dosage: UNK
  5. LITHIUM. [Concomitant]
     Active Substance: LITHIUM
     Indication: BIPOLAR I DISORDER
     Dosage: UNK
  6. DOXEPIN [Concomitant]
     Active Substance: DOXEPIN
     Indication: SLEEP DISORDER
     Dosage: UNK
  7. TOPAMAX [Concomitant]
     Active Substance: TOPIRAMATE
     Indication: BIPOLAR I DISORDER
     Dosage: UNK

REACTIONS (7)
  - Mania [Not Recovered/Not Resolved]
  - Panic attack [Not Recovered/Not Resolved]
  - Hallucination [Not Recovered/Not Resolved]
  - Partner stress [Not Recovered/Not Resolved]
  - Paranoia [Not Recovered/Not Resolved]
  - Delusion [Not Recovered/Not Resolved]
  - Off label use [Not Recovered/Not Resolved]

NARRATIVE: CASE EVENT DATE: 201603
